FAERS Safety Report 5588802-X (Version None)
Quarter: 2008Q1

REPORT INFORMATION
  Report Type: 
  Country: None (occurrence: None)
  Receive Date: 20080111
  Receipt Date: 20080102
  Transmission Date: 20080703
  Serious: Yes (Other)
  Sender: FDA-Public Use
  Company Number: CO-PFIZER INC-2008001412

PATIENT
  Sex: Female

DRUGS (1)
  1. DOSTINEX [Suspect]

REACTIONS (1)
  - MENORRHAGIA [None]
